FAERS Safety Report 26203211 (Version 1)
Quarter: 2025Q4

REPORT INFORMATION
  Report Type: Spontaneous
  Country: US (occurrence: None)
  Receive Date: 20251223
  Receipt Date: 20251223
  Transmission Date: 20260117
  Serious: Yes (Hospitalization)
  Sender: FDA-CTU
  Company Number: None

PATIENT
  Age: 77 Year
  Sex: Female
  Weight: 51.75 kg

DRUGS (26)
  1. BRINSUPRI [Suspect]
     Active Substance: BRENSOCATIB
     Indication: Bronchiectasis
     Dosage: 30 TABLET(S) ORAL
     Route: 048
     Dates: start: 20251010, end: 20251108
  2. SYMBICORT [Concomitant]
     Active Substance: BUDESONIDE\FORMOTEROL FUMARATE DIHYDRATE
  3. SPIRIVA [Concomitant]
     Active Substance: TIOTROPIUM BROMIDE MONOHYDRATE
  4. THEOPHYLLINE [Concomitant]
     Active Substance: THEOPHYLLINE
  5. MOMETASONE [Concomitant]
     Active Substance: MOMETASONE
  6. ALBUTEROL [Concomitant]
     Active Substance: ALBUTEROL
  7. nebulized 3% [Concomitant]
  8. SODIUM CHLORIDE [Concomitant]
     Active Substance: SODIUM CHLORIDE
  9. nebulized [Concomitant]
  10. METOPROLOL [Concomitant]
     Active Substance: METOPROLOL
  11. AZITHROMYCIN [Concomitant]
     Active Substance: AZITHROMYCIN
     Dosage: FREQUENCY : 3 TIMES A WEEK;
  12. LEVOTHYROXINE [Concomitant]
     Active Substance: LEVOTHYROXINE
  13. ATORVASTATIN [Concomitant]
     Active Substance: ATORVASTATIN
  14. ACYCLOVIR [Concomitant]
     Active Substance: ACYCLOVIR
  15. FLUOXETINE [Concomitant]
     Active Substance: FLUOXETINE HYDROCHLORIDE
  16. MONTELUKAST [Concomitant]
     Active Substance: MONTELUKAST
  17. SPIRONOLACTONE [Concomitant]
     Active Substance: SPIRONOLACTONE
  18. EVENITY [Concomitant]
     Active Substance: ROMOSOZUMAB-AQQG
  19. Cyclosporine eye [Concomitant]
  20. emulsion [Concomitant]
  21. TUMS [Concomitant]
     Active Substance: CALCIUM CARBONATE
  22. FIBER THERAPY (CALCIUM POLYCARBOPHIL) [Concomitant]
     Active Substance: CALCIUM POLYCARBOPHIL
  23. Well Stool softener [Concomitant]
  24. PEPCID [Concomitant]
     Active Substance: FAMOTIDINE
  25. VITAMINS [Concomitant]
     Active Substance: VITAMINS
  26. MAGNESIUM [Concomitant]
     Active Substance: MAGNESIUM

REACTIONS (20)
  - Cough [None]
  - Sputum abnormal [None]
  - Hypoacusis [None]
  - Sinus disorder [None]
  - Secretion discharge [None]
  - Dysphonia [None]
  - Throat irritation [None]
  - Chills [None]
  - Pain [None]
  - Pyrexia [None]
  - Therapy cessation [None]
  - Oxygen saturation decreased [None]
  - Aspiration [None]
  - Lower respiratory tract infection [None]
  - Productive cough [None]
  - Bronchial secretion retention [None]
  - Refusal of treatment by patient [None]
  - Cough [None]
  - Fatigue [None]
  - Dysphonia [None]

NARRATIVE: CASE EVENT DATE: 20251010
